FAERS Safety Report 5002012-6 (Version None)
Quarter: 2006Q2

REPORT INFORMATION
  Report Type: 
  Country: None (occurrence: None)
  Receive Date: 20060515
  Receipt Date: 20060501
  Transmission Date: 20061013
  Serious: Yes (Hospitalization)
  Sender: FDA-Public Use
  Company Number: AU-ROCHE-446052

PATIENT
  Sex: Female
  Weight: 47 kg

DRUGS (4)
  1. CAPECITABINE [Suspect]
     Dosage: DOSE REDUCED OR CEASED EARLY DUE TO HAEMATOLOGIC TOXICITY.
     Route: 065
     Dates: start: 20060407
  2. TAXOTERE [Suspect]
     Dosage: TOTAL DOSE = 44MG
     Route: 065
     Dates: start: 20060407
  3. TAXOTERE [Suspect]
     Dosage: TOTAL DOSE = 44MG
     Route: 065
     Dates: start: 20060413
  4. CLEXANE [Concomitant]
     Indication: PROPHYLAXIS
     Dosage: ROUTE: INTRAMUSCULAR / SUBCUTANEOUS
     Route: 030
     Dates: start: 20060418

REACTIONS (3)
  - DIARRHOEA [None]
  - FEBRILE NEUTROPENIA [None]
  - MUCOSAL INFLAMMATION [None]
